FAERS Safety Report 24883868 (Version 1)
Quarter: 2025Q1

REPORT INFORMATION
  Report Type: Spontaneous
  Country: US (occurrence: US)
  Receive Date: 20250124
  Receipt Date: 20250124
  Transmission Date: 20250408
  Serious: No
  Sender: SUNOVION
  Company Number: US-SMPA-2025SPA000354AA

PATIENT

DRUGS (1)
  1. GEMTESA [Suspect]
     Active Substance: VIBEGRON
     Route: 048

REACTIONS (2)
  - Discomfort [Not Recovered/Not Resolved]
  - Adverse drug reaction [Unknown]
